FAERS Safety Report 8826612 (Version 1)
Quarter: 2012Q4

REPORT INFORMATION
  Report Type: 
  Country: GB (occurrence: GB)
  Receive Date: 20121005
  Receipt Date: 20121005
  Transmission Date: 20130627
  Serious: Yes (Hospitalization)
  Sender: FDA-Public Use
  Company Number: GB-GLAXOSMITHKLINE-B0833209A

PATIENT
  Age: 52 Year
  Sex: Male

DRUGS (3)
  1. NICOTINE [Suspect]
  2. CLOZARIL [Suspect]
     Dosage: 275MG Per day
  3. CLOZARIL [Suspect]
     Indication: SCHIZOPHRENIA
     Route: 048
     Dates: start: 20010518

REACTIONS (2)
  - Somnolence [Unknown]
  - Rash [Unknown]
